FAERS Safety Report 20501437 (Version 1)
Quarter: 2022Q1

REPORT INFORMATION
  Report Type: Spontaneous
  Country: CN (occurrence: CN)
  Receive Date: 20220222
  Receipt Date: 20220222
  Transmission Date: 20220423
  Serious: Yes (Other)
  Sender: FDA-Public Use
  Company Number: CN-PFIZER INC-202200239212

PATIENT
  Age: 58 Year
  Sex: Female

DRUGS (1)
  1. SUNITINIB MALATE [Suspect]
     Active Substance: SUNITINIB MALATE
     Indication: Gastric cancer
     Dosage: TAKEN FOR 4 WEEKS AND SUSPENDED FOR 2 WEEKS
     Route: 048
     Dates: start: 20220101, end: 20220131

REACTIONS (1)
  - Myelosuppression [Recovering/Resolving]

NARRATIVE: CASE EVENT DATE: 20220105
